FAERS Safety Report 7178754-3 (Version None)
Quarter: 2010Q4

REPORT INFORMATION
  Report Type: 
  Country: None (occurrence: None)
  Receive Date: 20101221
  Receipt Date: 20101208
  Transmission Date: 20110411
  Serious: Yes (Hospitalization, Other)
  Sender: FDA-Public Use
  Company Number: US-ELI_LILLY_AND_COMPANY-US201009005632

PATIENT
  Sex: Female
  Weight: 56.689 kg

DRUGS (7)
  1. FORTEO [Suspect]
     Indication: OSTEOPOROSIS
     Dosage: 20 UG, DAILY (1/D)
     Dates: start: 20091113
  2. LISINOPRIL [Concomitant]
     Dosage: 40 MG, DAILY (1/D)
  3. AMLODIPINE BESYLATE [Concomitant]
  4. ASPIRIN [Concomitant]
     Dosage: 81 MG, DAILY (1/D)
  5. CALCIUM [Concomitant]
     Dosage: 2 TABLETS
  6. POTASSIUM CHLORIDE [Concomitant]
  7. VITAMIN D [Concomitant]
     Dosage: 2 CAPSULES

REACTIONS (2)
  - LARGE INTESTINAL OBSTRUCTION [None]
  - TENDERNESS [None]
